FAERS Safety Report 9275448 (Version 1)
Quarter: 2013Q2

REPORT INFORMATION
  Report Type: Spontaneous
  Country: US (occurrence: None)
  Receive Date: 20130501
  Receipt Date: 20130501
  Transmission Date: 20140414
  Serious: No
  Sender: FDA-Public Use
  Company Number: None

PATIENT
  Age: 50 Year
  Sex: 0

DRUGS (1)
  1. LYRICA 25 MG PFIZER PARKE-DAVIS [Suspect]

REACTIONS (5)
  - Sleep disorder [None]
  - Muscle twitching [None]
  - Nightmare [None]
  - Hallucination, visual [None]
  - Derealisation [None]
